FAERS Safety Report 5643769-0 (Version None)
Quarter: 2008Q1

REPORT INFORMATION
  Report Type: 
  Country: None (occurrence: None)
  Receive Date: 20080226
  Receipt Date: 20080219
  Transmission Date: 20080703
  Serious: Yes (Hospitalization)
  Sender: FDA-Public Use
  Company Number: T08-USA-00208-01

PATIENT
  Weight: 3.997 kg

DRUGS (5)
  1. CERVIDIL [Suspect]
     Indication: LABOUR INDUCTION
     Dosage: 10 MG ONCE TRANSPLACENTAL
     Route: 064
     Dates: start: 20070221, end: 20070222
  2. ANTI-EMETIC (NOT SPECIFIED) [Concomitant]
  3. IV FLUID (NOT SPECIFIED) [Concomitant]
  4. EPIDURAL (NOT SPECIFIED) [Concomitant]
  5. OXYTOCIN [Concomitant]

REACTIONS (2)
  - DRUG EXPOSURE DURING PREGNANCY [None]
  - HYPERBILIRUBINAEMIA NEONATAL [None]
